FAERS Safety Report 24825931 (Version 5)
Quarter: 2025Q1

REPORT INFORMATION
  Report Type: Spontaneous
  Country: DE (occurrence: DE)
  Receive Date: 20250109
  Receipt Date: 20250306
  Transmission Date: 20250408
  Serious: Yes (Other)
  Sender: TAKEDA
  Company Number: DE-JNJFOC-20241273962

PATIENT
  Age: 74 Year
  Sex: Female

DRUGS (12)
  1. BORTEZOMIB [Suspect]
     Active Substance: BORTEZOMIB
     Indication: Plasma cell myeloma
     Dosage: UNK UNK, 2/WEEK
     Dates: start: 2013
  2. BORTEZOMIB [Suspect]
     Active Substance: BORTEZOMIB
     Dosage: UNK UNK, 2/WEEK
  3. DEXAMETHASONE [Suspect]
     Active Substance: DEXAMETHASONE
     Indication: Plasma cell myeloma
  4. DARZALEX [Suspect]
     Active Substance: DARATUMUMAB
     Indication: Plasma cell myeloma
     Dosage: UNK UNK, 2/WEEK
  5. DARZALEX [Suspect]
     Active Substance: DARATUMUMAB
     Dosage: UNK UNK, Q2WEEKS
  6. DARZALEX [Suspect]
     Active Substance: DARATUMUMAB
     Dosage: UNK UNK, 2/WEEK
  7. LENALIDOMIDE [Suspect]
     Active Substance: LENALIDOMIDE
     Indication: Plasma cell myeloma
  8. CYCLOPHOSPHAMIDE [Suspect]
     Active Substance: CYCLOPHOSPHAMIDE
     Indication: Plasma cell myeloma
  9. MELPHALAN [Concomitant]
     Active Substance: MELPHALAN
     Indication: Product used for unknown indication
  10. ZOLEDRONATE DISODIUM [Concomitant]
     Active Substance: ZOLEDRONATE DISODIUM
     Indication: Drug therapy
  11. DENOSUMAB [Concomitant]
     Active Substance: DENOSUMAB
     Indication: Drug therapy
  12. PFIZER-BIONTECH COVID-19 VACCINE [Concomitant]
     Active Substance: TOZINAMERAN
     Indication: COVID-19 immunisation

REACTIONS (3)
  - Drug ineffective [Unknown]
  - Plasma cell myeloma [Unknown]
  - Hypercalcaemia [Unknown]

NARRATIVE: CASE EVENT DATE: 20190101
